FAERS Safety Report 9303081 (Version 1)
Quarter: 2013Q2

REPORT INFORMATION
  Report Type: Spontaneous
  Country: FR (occurrence: None)
  Receive Date: 20130516
  Receipt Date: 20130516
  Transmission Date: 20140414
  Serious: Yes (Hospitalization)
  Sender: FDA-Public Use
  Company Number: SP06657

PATIENT
  Age: 66 Year
  Sex: Female

DRUGS (2)
  1. XIFAXAN [Suspect]
     Indication: HEPATIC ENCEPHALOPATHY
     Dosage: 1200 MG, 1 IN 1 D, ORAL
     Route: 048
     Dates: start: 20120616, end: 20120801
  2. NEXIUM [Suspect]
     Indication: HEPATIC ENCEPHALOPATHY
     Dosage: 80 MG (40 MG, 2 IN 1 D), ORAL
     Route: 048
     Dates: start: 20120616, end: 20120728

REACTIONS (4)
  - Inflammation [None]
  - Antinuclear antibody positive [None]
  - Proteinuria [None]
  - Dermatitis bullous [None]
